FAERS Safety Report 17016916 (Version 4)
Quarter: 2020Q1

REPORT INFORMATION
  Report Type: Report from Study
  Country: GB (occurrence: GB)
  Receive Date: 20191111
  Receipt Date: 20200226
  Transmission Date: 20200409
  Serious: Yes (Life-Threatening, Hospitalization)
  Sender: FDA-Public Use
  Company Number: GB-PFIZER INC-2019477443

PATIENT
  Age: 45 Year
  Sex: Female

DRUGS (26)
  1. TRASTUZUMAB RECOMBINANT [Suspect]
     Active Substance: TRASTUZUMAB
     Dosage: UNK
     Route: 058
     Dates: end: 20160308
  2. RAMIPRIL. [Concomitant]
     Active Substance: RAMIPRIL
  3. DIFFLAM [Concomitant]
     Active Substance: BENZYDAMINE HYDROCHLORIDE
  4. TAXOTERE [Suspect]
     Active Substance: DOCETAXEL
     Indication: BREAST CANCER METASTATIC
     Dosage: 120 MG, EVERY 3 WEEKS
     Route: 042
     Dates: start: 20150814, end: 20151117
  5. PERTUZUMAB. [Suspect]
     Active Substance: PERTUZUMAB
     Indication: BREAST CANCER METASTATIC
     Dosage: 840 MG EVERY 3 WEEKS, (ONE CYCLE (LOADING DOSE))
     Route: 042
     Dates: start: 20150804, end: 20150804
  6. IBANDRONIC ACID. [Concomitant]
     Active Substance: IBANDRONIC ACID
     Indication: METASTASES TO BONE
     Dosage: 50 MG, DAILY
     Route: 048
     Dates: start: 20150518
  7. CIPROFLOXACIN. [Concomitant]
     Active Substance: CIPROFLOXACIN
  8. TRASTUZUMAB. [Suspect]
     Active Substance: TRASTUZUMAB
     Dosage: 600 MG, EVERY 3 WEEKS (LOADING DOSE)
     Route: 042
     Dates: start: 20151217, end: 20160308
  9. TRASTUZUMAB RECOMBINANT [Suspect]
     Active Substance: TRASTUZUMAB
     Dosage: 600 MG, EVERY 3 WEEKS
     Route: 058
     Dates: start: 20160623
  10. DENOSUMAB [Concomitant]
     Active Substance: DENOSUMAB
     Dosage: 120 MG, MONTHLY
     Route: 058
     Dates: start: 20160127
  11. DEXAMETHASONE. [Concomitant]
     Active Substance: DEXAMETHASONE
     Dosage: 8 MG, FOR 3 DAYS EVERY 3 WEEKS
     Route: 048
     Dates: start: 20150803
  12. AROMASIN [Suspect]
     Active Substance: EXEMESTANE
     Indication: BREAST CANCER METASTATIC
     Dosage: 25 MG, DAILY
     Route: 048
     Dates: start: 20150518
  13. PERTUZUMAB. [Suspect]
     Active Substance: PERTUZUMAB
     Dosage: 420 MG, EVERY 3 WEEKS (MAINTAINANCE DOSE)
     Route: 042
     Dates: start: 20151217, end: 20160308
  14. MEROPENEM. [Concomitant]
     Active Substance: MEROPENEM
  15. TRASTUZUMAB. [Suspect]
     Active Substance: TRASTUZUMAB
     Indication: BREAST CANCER METASTATIC
     Dosage: 483 MG, 1X/DAY (LOADING DOSE)
     Route: 042
     Dates: start: 20150803, end: 20150803
  16. TRASTUZUMAB RECOMBINANT [Suspect]
     Active Substance: TRASTUZUMAB
     Indication: BREAST CANCER METASTATIC
     Dosage: 600 MG, EVERY 3 WEEKS (MAINTAINANCE DOSE)
     Route: 058
     Dates: start: 20150825, end: 20151117
  17. TAZOCIN [Concomitant]
     Active Substance: PIPERACILLIN SODIUM\TAZOBACTAM SODIUM
  18. GENTAMICIN. [Concomitant]
     Active Substance: GENTAMICIN
  19. PERTUZUMAB. [Suspect]
     Active Substance: PERTUZUMAB
     Dosage: 420 MG, EVERY 3 WEEKS (MAINTAINANCE DOSE)
     Route: 042
     Dates: start: 20150825, end: 20151117
  20. PERTUZUMAB. [Suspect]
     Active Substance: PERTUZUMAB
     Dosage: 840 MG, 1X/DAY(LOADING DOSE)
     Route: 042
     Dates: start: 20160623, end: 20160623
  21. BISOPROLOL [Concomitant]
     Active Substance: BISOPROLOL
  22. PARACETAMOL [Concomitant]
     Active Substance: ACETAMINOPHEN
  23. TRASTUZUMAB. [Suspect]
     Active Substance: TRASTUZUMAB
     Dosage: 600 UNK, UNK
  24. PERTUZUMAB. [Suspect]
     Active Substance: PERTUZUMAB
     Dosage: 420 MG, DAILY(MAINTENANCE DOSE)
     Route: 042
     Dates: start: 20160715
  25. TRASTUZUMAB RECOMBINANT [Suspect]
     Active Substance: TRASTUZUMAB
     Dosage: 600 MG, EVERY 3 WEEKS
     Route: 058
     Dates: start: 20160723
  26. CO-AMOXICLAV [AMOXICILLIN SODIUM;CLAVULANATE POTASSIUM] [Concomitant]
     Active Substance: AMOXICILLIN\CLAVULANATE POTASSIUM

REACTIONS (15)
  - Rash [Unknown]
  - Hot flush [Unknown]
  - Influenza like illness [Recovered/Resolved]
  - Alopecia [Unknown]
  - Diarrhoea [Recovered/Resolved]
  - Epistaxis [Unknown]
  - Device related infection [Recovered/Resolved]
  - Mucosal inflammation [Unknown]
  - Fatigue [Unknown]
  - Anaemia [Recovered/Resolved]
  - Sepsis [Unknown]
  - Lymphoedema [Unknown]
  - Ejection fraction decreased [Recovered/Resolved]
  - Gingival swelling [Unknown]
  - Gastrooesophageal reflux disease [Unknown]

NARRATIVE: CASE EVENT DATE: 201508
